FAERS Safety Report 7867673-2 (Version None)
Quarter: 2011Q4

REPORT INFORMATION
  Report Type: 
  Country: None (occurrence: None)
  Receive Date: 20111028
  Receipt Date: 20100318
  Transmission Date: 20120403
  Serious: No
  Sender: FDA-Public Use
  Company Number: US-BAYER-201018804NA

PATIENT
  Sex: Female

DRUGS (1)
  1. AVELOX [Suspect]
     Indication: SINUSITIS
     Dosage: 1 DF, UNK

REACTIONS (4)
  - NERVOUSNESS [None]
  - HYPOGLYCAEMIA [None]
  - NAUSEA [None]
  - DIZZINESS [None]
